FAERS Safety Report 17049743 (Version 1)
Quarter: 2019Q4

REPORT INFORMATION
  Report Type: Report from Study
  Country: NL (occurrence: NL)
  Receive Date: 20191119
  Receipt Date: 20191119
  Transmission Date: 20200122
  Serious: Yes (Hospitalization)
  Sender: FDA-Public Use
  Company Number: NL-MYLANLABS-2019M1110823

PATIENT

DRUGS (4)
  1. FLUOROURACIL. [Suspect]
     Active Substance: FLUOROURACIL
     Indication: COLORECTAL CANCER
     Dosage: UNK (DATE OF LAST DOSE: 18/APR/2019)
     Route: 065
     Dates: start: 20190403, end: 20190418
  2. LEUCOVORIN                         /00566701/ [Suspect]
     Active Substance: LEUCOVORIN
     Indication: COLORECTAL CANCER
     Dosage: UNK,(DATE OF LAST DOSE:17/APR/2019)
     Route: 065
     Dates: start: 20190403, end: 20190417
  3. OXALIPLATIN. [Suspect]
     Active Substance: OXALIPLATIN
     Indication: COLORECTAL CANCER
     Dosage: UNK (DATE OF LAST DOSE: 17/APR/2019)
     Route: 065
     Dates: start: 20190403, end: 20190417
  4. BEVACIZUMAB. [Suspect]
     Active Substance: BEVACIZUMAB
     Indication: COLORECTAL CANCER
     Dosage: UNK (DATE OF LAST DOSE: 17/APR/2019)
     Route: 065
     Dates: start: 20190403, end: 20190417

REACTIONS (1)
  - Chest pain [Recovered/Resolved]

NARRATIVE: CASE EVENT DATE: 20190430
